FAERS Safety Report 9632225 (Version 2)
Quarter: 2013Q4

REPORT INFORMATION
  Report Type: Report from Study
  Country: KE (occurrence: KE)
  Receive Date: 20131018
  Receipt Date: 20131107
  Transmission Date: 20140711
  Serious: Yes (Death)
  Sender: FDA-Public Use
  Company Number: KE-009507513-1310KEN008169

PATIENT
  Sex: Male

DRUGS (6)
  1. RALTEGRAVIR POTASSIUM [Suspect]
     Indication: HIV INFECTION
     Dosage: UNK
     Dates: start: 20130924, end: 20131007
  2. TENOFOVIR [Suspect]
     Indication: HIV INFECTION
     Dosage: UNK
     Dates: start: 20130924, end: 20131007
  3. EMTRICITABINE [Suspect]
     Indication: HIV INFECTION
     Dosage: UNK
     Dates: start: 20130924, end: 20131007
  4. EFAVIRENZ [Suspect]
     Indication: HIV INFECTION
     Dosage: UNK
     Dates: start: 20130924, end: 20131007
  5. SEPTRIN [Suspect]
     Dosage: UNK
     Dates: start: 20130918, end: 20131007
  6. CIPROFLOXACIN [Suspect]
     Dosage: UNK
     Dates: start: 20130918, end: 20130923

REACTIONS (1)
  - Malnutrition [Fatal]
